FAERS Safety Report 22638597 (Version 1)
Quarter: 2023Q2

REPORT INFORMATION
  Report Type: Report from Study
  Country: DE (occurrence: DE)
  Receive Date: 20230626
  Receipt Date: 20230626
  Transmission Date: 20230721
  Serious: Yes (Hospitalization)
  Sender: FDA-Public Use
  Company Number: DE-CELGENE-DEU-2016092556

PATIENT
  Age: 82 Year
  Sex: Female
  Weight: 82 kg

DRUGS (15)
  1. REVLIMID [Suspect]
     Active Substance: LENALIDOMIDE
     Indication: Plasma cell myeloma
     Dosage: FREQUENCY TEXT: NOT PROVIDED
     Route: 048
     Dates: start: 20160718, end: 20160904
  2. DEXAMETHASONE [Suspect]
     Active Substance: DEXAMETHASONE
     Indication: Plasma cell myeloma
     Dosage: 64 MILLIGRAM
     Dates: start: 20160718, end: 20160829
  3. BISOPROLOL [Concomitant]
     Active Substance: BISOPROLOL
     Indication: Hypertension
     Dosage: FREQUENCY TEXT: NOT PROVIDED
     Dates: start: 20151203
  4. BISOPROLOL [Concomitant]
     Active Substance: BISOPROLOL
     Indication: Prophylaxis
     Dosage: 5 MILLIGRAM
     Route: 048
     Dates: start: 20161005
  5. RAMIPRIL [Concomitant]
     Active Substance: RAMIPRIL
     Indication: Product used for unknown indication
     Dosage: FREQUENCY TEXT: NOT PROVIDED
     Dates: start: 20151203
  6. PANTOZOL [Concomitant]
     Active Substance: PANTOPRAZOLE SODIUM
     Indication: Gastrooesophageal reflux disease
     Dosage: FREQUENCY TEXT: NOT PROVIDED
     Dates: start: 20151203
  7. PANTOZOL [Concomitant]
     Active Substance: PANTOPRAZOLE SODIUM
     Indication: Prophylaxis
     Dosage: 40 MILLIGRAM
     Route: 048
     Dates: start: 20161005
  8. CITALOPRAM [Concomitant]
     Active Substance: CITALOPRAM HYDROBROMIDE
     Indication: Depression
     Dosage: 40 MILLIGRAM
     Route: 048
     Dates: start: 20151203
  9. CITALOPRAM [Concomitant]
     Active Substance: CITALOPRAM HYDROBROMIDE
     Dosage: 40 MILLIGRAM
     Route: 048
     Dates: start: 20161005
  10. Tavor [Concomitant]
     Indication: Depression
     Dosage: 1 MILLIGRAM
     Route: 048
     Dates: start: 20161005
  11. Tavor [Concomitant]
     Indication: Prophylaxis
  12. ZOMETA [Concomitant]
     Active Substance: ZOLEDRONIC ACID
     Indication: Prophylaxis
     Route: 042
     Dates: start: 20160920, end: 201610
  13. ZOMETA [Concomitant]
     Active Substance: ZOLEDRONIC ACID
     Route: 042
     Dates: start: 20160519
  14. FOLICOMBIN [Concomitant]
     Indication: Prophylaxis
     Route: 048
     Dates: start: 20161005
  15. FOLICOMBIN [Concomitant]
     Indication: Iron deficiency anaemia

REACTIONS (2)
  - Back pain [Not Recovered/Not Resolved]
  - Streptococcal bacteraemia [Not Recovered/Not Resolved]

NARRATIVE: CASE EVENT DATE: 20160905
